FAERS Safety Report 18984597 (Version 2)
Quarter: 2021Q1

REPORT INFORMATION
  Report Type: Spontaneous
  Country: US (occurrence: US)
  Receive Date: 20210308
  Receipt Date: 20210316
  Transmission Date: 20210420
  Serious: Yes (Hospitalization, Other)
  Sender: FDA-Public Use
  Company Number: US-009507513-2103USA001443

PATIENT
  Age: 78 Year
  Sex: Male
  Weight: 79.89 kg

DRUGS (6)
  1. ALKA?SELTZER [Concomitant]
     Active Substance: ANHYDROUS CITRIC ACID\ASPIRIN\SODIUM BICARBONATE
     Dosage: UNK, PRN
  2. KEYTRUDA [Suspect]
     Active Substance: PEMBROLIZUMAB
     Indication: SQUAMOUS CELL CARCINOMA OF SKIN
     Dosage: 200 MILLIGRAM, ONCE EVERY 3 WEEKS
     Route: 042
     Dates: start: 20180131
  3. FAMOTIDINE. [Concomitant]
     Active Substance: FAMOTIDINE
     Dosage: 20 MILLIGRAM
  4. FLUTICASONE. [Concomitant]
     Active Substance: FLUTICASONE
     Dosage: 50 MICROGRAM
  5. ZINC (UNSPECIFIED) [Concomitant]
     Active Substance: ZINC
  6. ALEVE [Concomitant]
     Active Substance: NAPROXEN SODIUM
     Dosage: TOTAL DAILY DOSE: 200 MG, PRN

REACTIONS (4)
  - Rash [Recovered/Resolved]
  - Pneumonia [Recovered/Resolved]
  - COVID-19 [Recovered/Resolved]
  - Vomiting [Recovered/Resolved]

NARRATIVE: CASE EVENT DATE: 2020
